FAERS Safety Report 7482786-5 (Version None)
Quarter: 2011Q2

REPORT INFORMATION
  Report Type: 
  Country: None (occurrence: None)
  Receive Date: 20110516
  Receipt Date: 20110510
  Transmission Date: 20111010
  Serious: Yes (Other)
  Sender: FDA-Public Use
  Company Number: US-PFIZER INC-2011100302

PATIENT
  Sex: Male

DRUGS (1)
  1. ROBITUSSIN COUGH AND CHEST CONGESTION SUGAR FREE DM [Suspect]
     Indication: COUGH
     Dosage: THREE TEASPOONFULS, UNK
     Route: 048
     Dates: start: 20110401, end: 20110401

REACTIONS (1)
  - BLOOD GLUCOSE DECREASED [None]
